FAERS Safety Report 12171322 (Version 2)
Quarter: 2016Q3

REPORT INFORMATION
  Report Type: Spontaneous
  Country: US (occurrence: US)
  Receive Date: 20160311
  Receipt Date: 20160830
  Transmission Date: 20161109
  Serious: No
  Sender: FDA-Public Use
  Company Number: US-PFIZER INC-2016129964

PATIENT
  Age: 68 Year
  Sex: Male
  Weight: 87 kg

DRUGS (1)
  1. SUTENT [Suspect]
     Active Substance: SUNITINIB MALATE
     Indication: RENAL CELL CARCINOMA
     Dosage: 37.5 MG, CYCLIC (DAYS 1-28 Q 42 DAYS)
     Route: 048
     Dates: start: 20151017

REACTIONS (3)
  - Back pain [Unknown]
  - Paraesthesia [Unknown]
  - Pain in extremity [Unknown]
